FAERS Safety Report 25593634 (Version 1)
Quarter: 2025Q3

REPORT INFORMATION
  Report Type: Spontaneous
  Country: US (occurrence: US)
  Receive Date: 20250722
  Receipt Date: 20250722
  Transmission Date: 20251021
  Serious: Yes (Other)
  Sender: ALEXION PHARMACEUTICALS
  Company Number: US-AstraZeneca-CH-00911475A

PATIENT
  Sex: Female

DRUGS (1)
  1. SYMBICORT [Suspect]
     Active Substance: BUDESONIDE\FORMOTEROL FUMARATE DIHYDRATE
     Indication: Asthma
     Dosage: UNK UNK, BID
     Route: 065

REACTIONS (18)
  - Product substitution issue [Unknown]
  - Haematochezia [Unknown]
  - Emphysema [Unknown]
  - Chronic obstructive pulmonary disease [Unknown]
  - Hypoacusis [Unknown]
  - Therapeutic product effect increased [Unknown]
  - Intentional product misuse [Unknown]
  - Drug dependence [Unknown]
  - Asthma [Unknown]
  - Dyspepsia [Unknown]
  - Fall [Unknown]
  - Urinary incontinence [Unknown]
  - Haemorrhage [Unknown]
  - Throat tightness [Unknown]
  - Muscular weakness [Unknown]
  - Abdominal pain lower [Unknown]
  - Abdominal distension [Unknown]
  - Oral candidiasis [Unknown]
